FAERS Safety Report 16387377 (Version 1)
Quarter: 2019Q2

REPORT INFORMATION
  Report Type: Spontaneous
  Country: US (occurrence: US)
  Receive Date: 20190426
  Receipt Date: 20190426
  Transmission Date: 20190711
  Serious: Yes (Life-Threatening, Disabling)
  Sender: FDA-Public Use
  Company Number: None

PATIENT
  Age: 73 Year
  Sex: Male
  Weight: 89.81 kg

DRUGS (6)
  1. LEVOFLOXACIN. [Suspect]
     Active Substance: LEVOFLOXACIN
     Indication: BRONCHITIS
     Dosage: ?          QUANTITY:7 DF DOSAGE FORM;?
     Route: 048
     Dates: start: 20190409, end: 20190415
  2. SINUS-MAX [Concomitant]
  3. BLOOD PRES [Concomitant]
  4. ACID REFLUX [Concomitant]
  5. MOOD MED [Concomitant]
  6. MUCINEX [Concomitant]
     Active Substance: GUAIFENESIN

REACTIONS (15)
  - Suicidal ideation [None]
  - Hypertension [None]
  - Confusional state [None]
  - Heart rate increased [None]
  - Asthenia [None]
  - Headache [None]
  - Abdominal pain [None]
  - Fatigue [None]
  - Depression [None]
  - Syncope [None]
  - Dyspnoea [None]
  - Dizziness [None]
  - Abdominal pain upper [None]
  - Diplopia [None]
  - Nausea [None]

NARRATIVE: CASE EVENT DATE: 20190411
